FAERS Safety Report 7069357-X (Version None)
Quarter: 2010Q4

REPORT INFORMATION
  Report Type: 
  Country: None (occurrence: None)
  Receive Date: 20101028
  Receipt Date: 20101015
  Transmission Date: 20110411
  Serious: Yes (Life-Threatening, Hospitalization, Other)
  Sender: FDA-Public Use
  Company Number: JP-GENZYME-FLUD-1000015

PATIENT
  Sex: Male
  Weight: 69 kg

DRUGS (15)
  1. FLUDARA [Suspect]
     Indication: PREMEDICATION
     Dosage: 55 MG, UNK
     Route: 042
     Dates: start: 20081210, end: 20081215
  2. FLUDARA [Suspect]
     Dosage: 30 MG/M2, UNK
     Route: 042
     Dates: start: 20090226, end: 20090303
  3. THYMOGLOBULIN [Suspect]
     Indication: PREMEDICATION
     Dosage: 175 MG, UNK
     Dates: start: 20081216, end: 20081216
  4. BUSULFAN [Suspect]
     Indication: PREMEDICATION
     Dosage: 3.2 MG/KG, UNK
     Dates: start: 20090301, end: 20090301
  5. BUSULFAN [Suspect]
     Dosage: 3.2 MG/KG, UNK
     Dates: start: 20090228, end: 20090228
  6. BUSULFAN [Suspect]
     Dosage: 3.2 MG/KG, UNK
     Dates: start: 20081212, end: 20081213
  7. METHYLPREDNISOLONE SODIUM SUCCINATE [Concomitant]
     Indication: PREMEDICATION
     Dosage: 40 MG, UNK
     Route: 042
     Dates: start: 20081216, end: 20081216
  8. TACROLIMUS [Concomitant]
     Indication: PROPHYLAXIS AGAINST GRAFT VERSUS HOST DISEASE
     Dosage: UNK
     Dates: start: 20081217, end: 20090220
  9. METHOTREXATE [Concomitant]
     Indication: PROPHYLAXIS AGAINST GRAFT VERSUS HOST DISEASE
     Dosage: UNK
     Dates: start: 20081219, end: 20081224
  10. FILGRASTIM [Concomitant]
     Indication: BLOOD COUNT ABNORMAL
     Dosage: UNK
     Dates: start: 20081224, end: 20090224
  11. VALPROATE SODIUM [Concomitant]
     Indication: CONVULSION PROPHYLAXIS
     Dosage: UNK
     Dates: start: 20081210, end: 20081215
  12. TRIMETHOPRIM + SULFAMETHOXAZOLE [Concomitant]
     Indication: INFECTION PROPHYLAXIS
     Dosage: UNK
     Dates: start: 20081210, end: 20081215
  13. CIPROFLOXACIN HYDROCHLORIDE [Concomitant]
     Indication: INFECTION PROPHYLAXIS
     Dosage: UNK
     Dates: start: 20081210, end: 20081227
  14. FLUCONAZOLE [Concomitant]
     Indication: INFECTION PROPHYLAXIS
     Dosage: UNK
     Dates: start: 20081210, end: 20090217
  15. ACYCLOVIR [Concomitant]
     Indication: INFECTION PROPHYLAXIS
     Dosage: UNK
     Dates: start: 20081210, end: 20090306

REACTIONS (6)
  - CYSTITIS HAEMORRHAGIC [None]
  - CYTOMEGALOVIRUS INFECTION [None]
  - EPSTEIN-BARR VIRUS INFECTION [None]
  - FEBRILE NEUTROPENIA [None]
  - PANCYTOPENIA [None]
  - TRANSPLANT FAILURE [None]
